FAERS Safety Report 7231029-6 (Version None)
Quarter: 2011Q1

REPORT INFORMATION
  Report Type: 
  Country: None (occurrence: None)
  Receive Date: 20110118
  Receipt Date: 20110111
  Transmission Date: 20110831
  Serious: Yes (Other)
  Sender: FDA-Public Use
  Company Number: CA-ROCHE-752824

PATIENT
  Age: 54 Year
  Sex: Male

DRUGS (11)
  1. DECADRON [Concomitant]
  2. LEUCOVORIN [Concomitant]
     Dosage: ROUTE: INTRAVENOUS (NOT OTHERWISE SPECIFIED)
     Route: 042
  3. SYNTHROID [Concomitant]
  4. NEXIUM [Concomitant]
     Route: 048
  5. STEMETIL [Concomitant]
  6. ELOXATIN [Concomitant]
     Dosage: ROUTE: INTRAVENOUS (NOT OTHERWISE SPECIFIED)
     Route: 042
  7. FLUOROURACIL [Concomitant]
     Route: 040
  8. AVASTIN [Suspect]
     Dosage: FORM: INTRAVENOUS SOLUTION, FREQUENCY: CYCLICAL, THERAPY DURATION: 57 DAY
     Route: 041
  9. EFFEXOR XR [Concomitant]
     Dosage: FORM: CAPSULE EXTENDED RELEASE
  10. IRINOTECAN HYDROCHLORIDE [Concomitant]
     Dosage: FORM: INTRAVENOUS SOLUTION
     Route: 042
  11. KYTRIL [Concomitant]

REACTIONS (3)
  - ABDOMINAL PAIN [None]
  - ABDOMINAL RIGIDITY [None]
  - BLOOD PRESSURE INCREASED [None]
